FAERS Safety Report 5968089-6 (Version None)
Quarter: 2008Q4

REPORT INFORMATION
  Report Type: 
  Country: None (occurrence: None)
  Receive Date: 20081126
  Receipt Date: 20081119
  Transmission Date: 20090506
  Serious: Yes (Hospitalization)
  Sender: FDA-Public Use
  Company Number: RO-ASTRAZENECA-2008SE05266

PATIENT
  Age: 11762 Day
  Sex: Female

DRUGS (4)
  1. SEROQUEL XR [Suspect]
     Indication: SCHIZOAFFECTIVE DISORDER
     Route: 048
     Dates: start: 20080912, end: 20080912
  2. SEROQUEL XR [Suspect]
     Route: 048
     Dates: start: 20080913
  3. SEROQUEL XR [Suspect]
     Route: 048
     Dates: start: 20080914, end: 20081111
  4. DEPAKENE [Concomitant]
     Indication: SCHIZOAFFECTIVE DISORDER
     Route: 048

REACTIONS (1)
  - SCHIZOAFFECTIVE DISORDER [None]
